FAERS Safety Report 20004848 (Version 3)
Quarter: 2021Q4

REPORT INFORMATION
  Report Type: Spontaneous
  Country: IT (occurrence: IT)
  Receive Date: 20211027
  Receipt Date: 20211208
  Transmission Date: 20220303
  Serious: Yes (Death, Other)
  Sender: FDA-Public Use
  Company Number: IT-TAKEDA-2021TUS066330

PATIENT
  Age: 71 Year

DRUGS (3)
  1. NINLARO [Suspect]
     Active Substance: IXAZOMIB CITRATE
     Indication: Product used for unknown indication
     Dosage: 4 MILLIGRAM
     Route: 065
  2. DEXAMETHASONE [Suspect]
     Active Substance: DEXAMETHASONE
     Indication: Product used for unknown indication
     Dosage: UNK
     Route: 065
  3. LENALIDOMIDE [Suspect]
     Active Substance: LENALIDOMIDE
     Indication: Product used for unknown indication
     Dosage: 25 MILLIGRAM
     Route: 065

REACTIONS (2)
  - Malignant neoplasm progression [Fatal]
  - Hepatotoxicity [Recovered/Resolved]
